FAERS Safety Report 14262242 (Version 1)
Quarter: 2017Q4

REPORT INFORMATION
  Report Type: Spontaneous
  Country: US (occurrence: US)
  Receive Date: 20171208
  Receipt Date: 20171208
  Transmission Date: 20180321
  Serious: No
  Sender: FDA-Public Use
  Company Number: US-KYOWAKIRIN-2017BKK000516

PATIENT

DRUGS (9)
  1. VINBLASTINE [Concomitant]
     Active Substance: VINBLASTINE
     Indication: TESTIS CANCER
     Dosage: UNK, 1X/3 WEEKS
     Route: 042
     Dates: start: 20170206, end: 20170406
  2. ETOPOSIDE. [Concomitant]
     Active Substance: ETOPOSIDE
     Indication: TESTIS CANCER
     Dosage: UNK, 1X/3 WEEKS
     Route: 042
     Dates: start: 20170206, end: 20170406
  3. DACARBAZINE. [Concomitant]
     Active Substance: DACARBAZINE
     Indication: TESTIS CANCER
     Dosage: UNK, 1X/3 WEEKS
     Route: 042
     Dates: start: 20170206, end: 20170406
  4. SANCUSO [Suspect]
     Active Substance: GRANISETRON
     Indication: PROPHYLAXIS OF NAUSEA AND VOMITING
     Dosage: 1 DF, 1X/WEEK
     Route: 062
     Dates: start: 20170206, end: 20170213
  5. DOXORUBICIN [Concomitant]
     Active Substance: DOXORUBICIN
     Indication: TESTIS CANCER
     Dosage: UNK, 1X/3 WEEKS
     Route: 042
     Dates: start: 20170206, end: 20170406
  6. PALONOSETRON. [Concomitant]
     Active Substance: PALONOSETRON HYDROCHLORIDE
     Indication: TESTIS CANCER
     Dosage: UNK, 1X/3 WEEKS
     Route: 042
     Dates: start: 20170206, end: 20170406
  7. BLEOMYCIN [Concomitant]
     Active Substance: BLEOMYCIN SULFATE
     Indication: TESTIS CANCER
     Dosage: UNK, 1X/3 WEEKS
     Route: 042
     Dates: start: 20170206, end: 20170406
  8. CISPLATIN. [Concomitant]
     Active Substance: CISPLATIN
     Indication: TESTIS CANCER
     Dosage: UNK, 1X/3 WEEKS
     Route: 042
     Dates: start: 20170206, end: 20170406
  9. DEXAMETHASONE. [Concomitant]
     Active Substance: DEXAMETHASONE
     Indication: TESTIS CANCER
     Dosage: UNK, 1X/3 WEEKS
     Route: 042
     Dates: start: 20170206, end: 20170406

REACTIONS (5)
  - Application site erythema [Recovered/Resolved]
  - Application site discolouration [None]
  - Application site pustules [Recovered/Resolved]
  - Application site pruritus [Recovered/Resolved]
  - Application site rash [Recovered/Resolved with Sequelae]

NARRATIVE: CASE EVENT DATE: 20170207
